FAERS Safety Report 17228893 (Version 1)
Quarter: 2020Q1

REPORT INFORMATION
  Report Type: Spontaneous
  Country: GB (occurrence: GB)
  Receive Date: 20200103
  Receipt Date: 20200103
  Transmission Date: 20200409
  Serious: Yes (Death, Other)
  Sender: FDA-Public Use
  Company Number: AG-GB-019037

PATIENT
  Age: 14 Year
  Sex: Female
  Weight: 45 kg

DRUGS (17)
  1. DEXAMETHASONE. [Suspect]
     Active Substance: DEXAMETHASONE
     Indication: ACUTE LYMPHOCYTIC LEUKAEMIA
     Dosage: DRUG START PERIOD 4 (DAYS)
     Route: 048
     Dates: start: 20000606, end: 20000610
  2. CEFTAZIDIME. [Suspect]
     Active Substance: CEFTAZIDIME
     Indication: ACUTE LYMPHOCYTIC LEUKAEMIA
     Dosage: DRUG START PERIOD 43 (DAYS)
     Route: 042
     Dates: start: 20000428
  3. PEGASPARGASE [Suspect]
     Active Substance: PEGASPARGASE
     Indication: ACUTE LYMPHOCYTIC LEUKAEMIA
     Dosage: 3500IU PER DAY
     Route: 042
     Dates: start: 20000425, end: 20000606
  4. CHLORPHENIRAMINE. [Suspect]
     Active Substance: CHLORPHENIRAMINE
     Indication: ACUTE LYMPHOCYTIC LEUKAEMIA
     Dosage: 5 MG
     Route: 042
     Dates: start: 20000511, end: 20000512
  5. RANITIDINE. [Suspect]
     Active Substance: RANITIDINE
     Indication: ACUTE LYMPHOCYTIC LEUKAEMIA
     Dosage: 300 MG
     Route: 048
     Dates: start: 20000606, end: 20000610
  6. HYDROCORTISONE. [Suspect]
     Active Substance: HYDROCORTISONE
     Indication: ACUTE LYMPHOCYTIC LEUKAEMIA
     Dosage: 50 MG
     Route: 042
  7. ALLOPURINOL. [Suspect]
     Active Substance: ALLOPURINOL
     Indication: ACUTE LYMPHOCYTIC LEUKAEMIA
     Dosage: DRUG START PERIOD 58 (DAYS), DRUG LAST PERIOD 53 (DAYS)
     Route: 048
     Dates: start: 20000413, end: 20000418
  8. LIDOCAINE (BASE), HYDROCORTISONE ACETATE [Suspect]
     Active Substance: HYDROCORTISONE ACETATE\LIDOCAINE HYDROCHLORIDE
     Indication: ACUTE LYMPHOCYTIC LEUKAEMIA
     Dosage: 50MG PER DAY
     Route: 042
     Dates: start: 20000511
  9. ETOPOSIDE. [Suspect]
     Active Substance: ETOPOSIDE
     Indication: ACUTE LYMPHOCYTIC LEUKAEMIA
     Dosage: DRUG START PERIOD 18 (DAYS), DRUG LAST PERIOD 8 (DAYS)
     Route: 042
     Dates: start: 20000523, end: 20000602
  10. VINCRISTINE SULFATE. [Suspect]
     Active Substance: VINCRISTINE SULFATE
     Indication: ACUTE LYMPHOCYTIC LEUKAEMIA
     Dosage: DRUG START PERIOD 57 (DAYS), DRUG LAST PERIOD 4 (DAYS
     Route: 042
     Dates: start: 20000414, end: 20000606
  11. ACICLOVIR [Suspect]
     Active Substance: ACYCLOVIR
     Indication: ACUTE LYMPHOCYTIC LEUKAEMIA
     Dosage: 2 G, QD
     Route: 048
     Dates: start: 20000428, end: 20000502
  12. FLUCONAZOLE. [Suspect]
     Active Substance: FLUCONAZOLE
     Indication: ACUTE LYMPHOCYTIC LEUKAEMIA
     Dosage: 100 MG
     Route: 048
     Dates: start: 20000429, end: 20000503
  13. METHOTREXATE SODIUM. [Suspect]
     Active Substance: METHOTREXATE SODIUM
     Indication: ACUTE LYMPHOCYTIC LEUKAEMIA
     Dosage: DRUG START PERIOD 57 (DAYS), DRUG LAST PERIOD 30 (DAYS)
     Route: 037
     Dates: start: 20000414, end: 20000511
  14. SULFAMETHOXAZOLE, TRIMETHOPRIM [Suspect]
     Active Substance: SULFAMETHOXAZOLE\TRIMETHOPRIM
     Indication: ACUTE LYMPHOCYTIC LEUKAEMIA
     Dosage: DRUG START PERIOD 18 (DAYS)
     Route: 048
     Dates: start: 20000523, end: 20000610
  15. PARACETAMOL [Suspect]
     Active Substance: ACETAMINOPHEN
     Indication: ACUTE LYMPHOCYTIC LEUKAEMIA
     Dosage: DRUG START PERIOD 43 (DAYS), DRUG LAST PERIOD 39 (DAYS)
     Route: 048
     Dates: start: 20000428, end: 20000502
  16. FLUCLOXACILLIN [Suspect]
     Active Substance: FLUCLOXACILLIN
     Indication: ACUTE LYMPHOCYTIC LEUKAEMIA
     Dosage: DRUG START PERIOD 43 (DAYS)
     Route: 042
     Dates: start: 20000428
  17. ASPARAGINASE [Suspect]
     Active Substance: ASPARAGINASE
     Indication: ACUTE LYMPHOCYTIC LEUKAEMIA
     Dosage: DRUG START PERIOD 46 (DAYS), DRUG LAST PERIOD 4 (DAYS)
     Route: 042
     Dates: start: 20000425, end: 20000606

REACTIONS (8)
  - Condition aggravated [Unknown]
  - Pulmonary haemorrhage [Fatal]
  - Respiratory tract haemorrhage [Fatal]
  - Lung disorder [Unknown]
  - Off label use [Fatal]
  - Staphylococcal infection [Unknown]
  - Drug ineffective for unapproved indication [Unknown]
  - Cytopenia [Unknown]

NARRATIVE: CASE EVENT DATE: 20000610
